FAERS Safety Report 5050290-X (Version None)
Quarter: 2006Q3

REPORT INFORMATION
  Report Type: 
  Country: None (occurrence: None)
  Receive Date: 20060713
  Receipt Date: 20060426
  Transmission Date: 20061208
  Serious: Yes (Other)
  Sender: FDA-Public Use
  Company Number: FR-AVENTIS-200611591FR

PATIENT
  Age: 71 Year
  Sex: Male

DRUGS (1)
  1. KETEK [Suspect]
     Indication: PNEUMONIA
     Route: 048
     Dates: start: 20060401, end: 20060401

REACTIONS (3)
  - BONE MARROW FAILURE [None]
  - NEUTROPENIA [None]
  - PANCYTOPENIA [None]
